FAERS Safety Report 10491993 (Version 1)
Quarter: 2014Q4

REPORT INFORMATION
  Report Type: Spontaneous
  Country: US (occurrence: US)
  Receive Date: 20141002
  Receipt Date: 20141002
  Transmission Date: 20150528
  Serious: No
  Sender: FDA-Public Use
  Company Number: US-GLAXOSMITHKLINE-A1063553A

PATIENT
  Age: 46 Year
  Sex: Female

DRUGS (4)
  1. ISOSORBID MONONITRATE [Concomitant]
     Active Substance: ISOSORBIDE MONONITRATE
  2. AMLODIPINE + BENAZEPRIL [Concomitant]
     Active Substance: AMLODIPINE BESYLATE\BENAZEPRIL HYDROCHLORIDE
  3. ASPIRIN. [Concomitant]
     Active Substance: ASPIRIN
  4. ADVAIR HFA [Suspect]
     Active Substance: FLUTICASONE PROPIONATE\SALMETEROL XINAFOATE
     Indication: ASTHMA
     Dosage: 1PUFF TWICE PER DAY
     Route: 055
     Dates: end: 20140221

REACTIONS (3)
  - Cough [Recovering/Resolving]
  - Wheezing [Recovering/Resolving]
  - Nasal congestion [Recovering/Resolving]

NARRATIVE: CASE EVENT DATE: 20140221
